FAERS Safety Report 6626517-7 (Version None)
Quarter: 2010Q1

REPORT INFORMATION
  Report Type: 
  Country: None (occurrence: None)
  Receive Date: 20100310
  Receipt Date: 20100224
  Transmission Date: 20100710
  Serious: Yes (Death, Hospitalization)
  Sender: FDA-Public Use
  Company Number: GR-ELI_LILLY_AND_COMPANY-GR201002004624

PATIENT
  Age: 74 Year
  Sex: Male

DRUGS (3)
  1. EFFIENT [Suspect]
     Indication: ANGIOPLASTY
     Dosage: 60 MG, DAILY (1/D)
     Route: 048
     Dates: start: 20100101, end: 20100101
  2. EFFIENT [Suspect]
     Dosage: 10 MG, DAILY (1/D)
     Route: 048
     Dates: start: 20100101, end: 20100201
  3. ASPIRIN [Concomitant]
     Indication: ANGIOPLASTY
     Dosage: 100 MG, DAILY (1/D)
     Route: 048
     Dates: end: 20100201

REACTIONS (2)
  - ACUTE LEUKAEMIA [None]
  - CEREBROVASCULAR ACCIDENT [None]
